FAERS Safety Report 12666120 (Version 1)
Quarter: 2016Q3

REPORT INFORMATION
  Report Type: Spontaneous
  Country: US (occurrence: US)
  Receive Date: 20160818
  Receipt Date: 20160818
  Transmission Date: 20161109
  Serious: No
  Sender: FDA-Public Use
  Company Number: US-JAZZ-2016-US-005605

PATIENT
  Sex: Female

DRUGS (43)
  1. XYREM [Suspect]
     Active Substance: SODIUM OXYBATE
     Dosage: 4.5 G, BID
     Route: 048
     Dates: start: 201512
  2. LEXAPRO [Concomitant]
     Active Substance: ESCITALOPRAM OXALATE
  3. NUCYNTA [Concomitant]
     Active Substance: TAPENTADOL HYDROCHLORIDE
  4. DOXYCYCLINE. [Concomitant]
     Active Substance: DOXYCYCLINE
  5. TYLENOL ARTHRITIS PAIN [Concomitant]
     Active Substance: ACETAMINOPHEN
  6. ASPIRIN. [Concomitant]
     Active Substance: ASPIRIN
  7. HYDROCODONE/ACETAMINOPHEN [Concomitant]
     Active Substance: ACETAMINOPHEN\HYDROCODONE
  8. VITAMIN D3 [Concomitant]
     Active Substance: CHOLECALCIFEROL
  9. AFRIN [Concomitant]
     Active Substance: OXYMETAZOLINE
  10. XYREM [Suspect]
     Active Substance: SODIUM OXYBATE
     Indication: SLEEP DISORDER
     Dosage: 0.75 G, BID
     Route: 048
     Dates: start: 201410, end: 201410
  11. FISH OIL [Concomitant]
     Active Substance: FISH OIL
  12. ONDANSETRON [Concomitant]
     Active Substance: ONDANSETRON
  13. LEVAQUIN [Concomitant]
     Active Substance: LEVOFLOXACIN
  14. FLONASE [Concomitant]
     Active Substance: FLUTICASONE PROPIONATE
  15. COENZYME Q10 [Concomitant]
     Active Substance: UBIDECARENONE
  16. RIBOFLAVIN [Concomitant]
     Active Substance: RIBOFLAVIN
  17. VITAMIN B2 [Concomitant]
     Active Substance: RIBOFLAVIN
  18. SIMVASTATIN. [Concomitant]
     Active Substance: SIMVASTATIN
  19. XYREM [Suspect]
     Active Substance: SODIUM OXYBATE
     Dosage: DOSE ADJUSTMENT
     Route: 048
  20. TRIAMCINOLONE [Concomitant]
     Active Substance: TRIAMCINOLONE
  21. ZYRTEC [Concomitant]
     Active Substance: CETIRIZINE HYDROCHLORIDE
  22. ALPRAZOLAM. [Concomitant]
     Active Substance: ALPRAZOLAM
  23. DIAZEPAM. [Concomitant]
     Active Substance: DIAZEPAM
  24. PROAIR HFA [Concomitant]
     Active Substance: ALBUTEROL SULFATE
  25. BOTOX [Concomitant]
     Active Substance: ONABOTULINUMTOXINA
  26. RITALIN [Concomitant]
     Active Substance: METHYLPHENIDATE HYDROCHLORIDE
  27. OCEAN SALINE NASAL SPRAY [Concomitant]
     Active Substance: SODIUM CHLORIDE
  28. KEFLEX [Concomitant]
     Active Substance: CEPHALEXIN
  29. VITAMIN D [Concomitant]
     Active Substance: CHOLECALCIFEROL
  30. ALBUTEROL. [Concomitant]
     Active Substance: ALBUTEROL
  31. DICLOFENAC [Concomitant]
     Active Substance: DICLOFENAC
  32. LEVOFLOXACIN. [Concomitant]
     Active Substance: LEVOFLOXACIN
  33. ZOLPIDEM [Concomitant]
     Active Substance: ZOLPIDEM\ZOLPIDEM TARTRATE
  34. XANAX [Concomitant]
     Active Substance: ALPRAZOLAM
  35. AMBIEN [Concomitant]
     Active Substance: ZOLPIDEM TARTRATE
  36. PROTONIX [Concomitant]
     Active Substance: PANTOPRAZOLE SODIUM
  37. ALLEGRA [Concomitant]
     Active Substance: FEXOFENADINE HYDROCHLORIDE
  38. PREDNISONE. [Concomitant]
     Active Substance: PREDNISONE
  39. LIDOCAINE. [Concomitant]
     Active Substance: LIDOCAINE
  40. TAMSULOSIN HCL [Concomitant]
     Active Substance: TAMSULOSIN
  41. VICODIN [Concomitant]
     Active Substance: ACETAMINOPHEN\HYDROCODONE BITARTRATE
  42. PHENERGAN [Concomitant]
     Active Substance: PROMETHAZINE HYDROCHLORIDE
  43. TIZANIDINE. [Concomitant]
     Active Substance: TIZANIDINE

REACTIONS (1)
  - Hypovitaminosis [Unknown]
